FAERS Safety Report 6531504-3 (Version None)
Quarter: 2010Q1

REPORT INFORMATION
  Report Type: 
  Country: None (occurrence: None)
  Receive Date: 20100108
  Receipt Date: 20100104
  Transmission Date: 20100710
  Serious: Yes (Hospitalization)
  Sender: FDA-Public Use
  Company Number: FR-ASTRAZENECA-2010SE00375

PATIENT
  Age: 33 Year
  Sex: Female

DRUGS (4)
  1. DIPRIVAN [Suspect]
     Dosage: SINGLE INJECTION
     Route: 042
     Dates: start: 20090818, end: 20090818
  2. CELOCURINE [Suspect]
     Dosage: SINGLE INJECTION
     Route: 042
     Dates: start: 20090818, end: 20090818
  3. CEFAZOLIN [Suspect]
     Dosage: SINGLE INJECTION
     Route: 042
     Dates: start: 20090818, end: 20090818
  4. SUFENTANIL CITRATE [Suspect]
     Dosage: SINGLE INJECTION
     Route: 042
     Dates: start: 20090818, end: 20090818

REACTIONS (1)
  - ANAPHYLACTIC SHOCK [None]
